FAERS Safety Report 25664258 (Version 1)
Quarter: 2025Q3

REPORT INFORMATION
  Report Type: Report from Study
  Country: US (occurrence: US)
  Receive Date: 20250811
  Receipt Date: 20250811
  Transmission Date: 20251021
  Serious: No
  Sender: SUNOVION
  Company Number: US-SUMITOMO PHARMA SWITZERLAND GMBH-2024SPA002035

PATIENT
  Age: 77 Year
  Sex: Male

DRUGS (4)
  1. ORGOVYX [Suspect]
     Active Substance: RELUGOLIX
     Indication: Prostate cancer
     Route: 048
     Dates: start: 20220112, end: 20220112
  2. ORGOVYX [Suspect]
     Active Substance: RELUGOLIX
     Dosage: 120 MG, QD
     Route: 048
     Dates: start: 20220113
  3. ORGOVYX [Suspect]
     Active Substance: RELUGOLIX
     Dosage: 120 MG, QD
     Route: 048
     Dates: start: 20220630
  4. ORGOVYX [Suspect]
     Active Substance: RELUGOLIX
     Route: 048

REACTIONS (10)
  - Nerve injury [Unknown]
  - Back disorder [Unknown]
  - Pain [Unknown]
  - Limb discomfort [Unknown]
  - Prostatic specific antigen increased [Unknown]
  - Back pain [Unknown]
  - Hot flush [Unknown]
  - Arthralgia [Unknown]
  - Constipation [Unknown]
  - Product dose omission issue [Recovered/Resolved]
